FAERS Safety Report 4500520-5 (Version None)
Quarter: 2004Q4

REPORT INFORMATION
  Report Type: 
  Country: None (occurrence: None)
  Receive Date: 20041110
  Receipt Date: 20041027
  Transmission Date: 20050328
  Serious: Yes (Death)
  Sender: FDA-Public Use
  Company Number: 2004S1000253

PATIENT
  Age: 86 Year
  Sex: Female

DRUGS (4)
  1. CUBICIN [Suspect]
     Indication: GLYCOPEPTIDE ANTIBIOTIC RESISTANT ENTEROCOCCAL INFECTION
     Dosage: 6 MG/KG; Q48H; IV
     Route: 042
     Dates: start: 20040301, end: 20040420
  2. DOXYCYCLINE [Concomitant]
  3. GATIFLOXACIN [Concomitant]
  4. METRONIDAZOLE [Concomitant]

REACTIONS (3)
  - BACTERIAL SEPSIS [None]
  - DISEASE RECURRENCE [None]
  - GENERAL PHYSICAL HEALTH DETERIORATION [None]
